FAERS Safety Report 19286935 (Version 1)
Quarter: 2021Q2

REPORT INFORMATION
  Report Type: Spontaneous
  Country: US (occurrence: US)
  Receive Date: 20210521
  Receipt Date: 20210521
  Transmission Date: 20210717
  Serious: No
  Sender: FDA-Public Use
  Company Number: US-RADIUS HEALTH INC.-2020US003463

PATIENT
  Age: 77 Year
  Sex: Female
  Weight: 81.18 kg

DRUGS (1)
  1. TYMLOS [Suspect]
     Active Substance: ABALOPARATIDE
     Indication: PRODUCT USED FOR UNKNOWN INDICATION
     Dosage: 80 MCG, QD
     Route: 058
     Dates: start: 201905

REACTIONS (3)
  - Swelling [Unknown]
  - Abdominal distension [Unknown]
  - Wheezing [Unknown]

NARRATIVE: CASE EVENT DATE: 202009
